FAERS Safety Report 7951299-6 (Version None)
Quarter: 2011Q4

REPORT INFORMATION
  Report Type: 
  Country: None (occurrence: None)
  Receive Date: 20111201
  Receipt Date: 20111122
  Transmission Date: 20120403
  Serious: Yes (Other)
  Sender: FDA-Public Use
  Company Number: US-BAYER-2011-112849

PATIENT
  Sex: Female
  Weight: 58.957 kg

DRUGS (1)
  1. MIRENA [Suspect]
     Indication: CONTRACEPTION
     Dosage: 20 MCG/24HR, CONT
     Route: 015
     Dates: start: 20110801

REACTIONS (5)
  - MALAISE [None]
  - WEIGHT INCREASED [None]
  - FLUID RETENTION [None]
  - SLUGGISHNESS [None]
  - ARTHRALGIA [None]
